FAERS Safety Report 11267379 (Version 2)
Quarter: 2015Q3

REPORT INFORMATION
  Report Type: Spontaneous
  Country: JP (occurrence: JP)
  Receive Date: 20150713
  Receipt Date: 20150731
  Transmission Date: 20151125
  Serious: Yes (Other)
  Sender: FDA-Public Use
  Company Number: JP-MYLANLABS-2015M1022232

PATIENT

DRUGS (3)
  1. CABASER [Suspect]
     Active Substance: CABERGOLINE
     Indication: PROLACTINOMA
     Dosage: 0.25 MG, QW
     Route: 048
  2. CABASER [Suspect]
     Active Substance: CABERGOLINE
     Dosage: 0.25 MG, QW
     Route: 048
  3. CABASER [Suspect]
     Active Substance: CABERGOLINE
     Dosage: 0.5 MG, QW
     Route: 048

REACTIONS (1)
  - Pituitary haemorrhage [Unknown]
